FAERS Safety Report 9891204 (Version 1)
Quarter: 2014Q1

REPORT INFORMATION
  Report Type: Spontaneous
  Country: US (occurrence: None)
  Receive Date: 20140211
  Receipt Date: 20140211
  Transmission Date: 20141002
  Serious: No
  Sender: FDA-Public Use
  Company Number: None

PATIENT
  Age: 26 Year
  Sex: Female
  Weight: 76.2 kg

DRUGS (1)
  1. MIRVASO [Suspect]
     Indication: ROSACEA
     Dosage: 1 TIME A DAY?ONCE DAILY ?APPLIED TO A SURFACE, USUALLY THE SKIN
     Dates: start: 20140206, end: 20140210

REACTIONS (2)
  - Burning sensation [None]
  - Erythema [None]
